FAERS Safety Report 4591115-6 (Version None)
Quarter: 2005Q1

REPORT INFORMATION
  Report Type: 
  Country: None (occurrence: None)
  Receive Date: 20050223
  Receipt Date: 20050223
  Transmission Date: 20050727
  Serious: Yes (Hospitalization)
  Sender: FDA-Public Use
  Company Number: None

PATIENT
  Sex: Male

DRUGS (6)
  1. ASPIRIN [Suspect]
     Indication: PROPHYLAXIS
     Dosage: 81 MG DAILY ORAL
     Route: 048
  2. DIGOXIN [Concomitant]
  3. DILTIAZEM [Concomitant]
  4. DOCUSATE [Concomitant]
  5. LEVOTHYROXINE [Concomitant]
  6. PREDNISOLONE ACETATE [Concomitant]

REACTIONS (1)
  - GASTROINTESTINAL HAEMORRHAGE [None]
